FAERS Safety Report 12779592 (Version 1)
Quarter: 2016Q3

REPORT INFORMATION
  Report Type: Spontaneous
  Country: US (occurrence: US)
  Receive Date: 20160924
  Receipt Date: 20160924
  Transmission Date: 20161109
  Serious: Yes (Disabling, Other)
  Sender: FDA-Public Use
  Company Number: None

PATIENT
  Age: 8 Year
  Sex: Male
  Weight: 28.8 kg

DRUGS (2)
  1. MONTELUKAST [Suspect]
     Active Substance: MONTELUKAST SODIUM
     Indication: MULTIPLE ALLERGIES
     Route: 048
     Dates: start: 20140716
  2. MONTELUKAST [Suspect]
     Active Substance: MONTELUKAST SODIUM
     Indication: ALLERGIC COUGH
     Route: 048
     Dates: start: 20140716

REACTIONS (6)
  - Anxiety [None]
  - Fear [None]
  - Hyperkinesia [None]
  - Tic [None]
  - Obsessive-compulsive disorder [None]
  - Depression [None]

NARRATIVE: CASE EVENT DATE: 20160923
